FAERS Safety Report 9920855 (Version 5)
Quarter: 2014Q3

REPORT INFORMATION
  Report Type: Spontaneous
  Country: PT (occurrence: PT)
  Receive Date: 20140225
  Receipt Date: 20140901
  Transmission Date: 20150326
  Serious: Yes (Other)
  Sender: FDA-Public Use
  Company Number: PT-009507513-1402PRT004954

PATIENT
  Age: 29 Year
  Sex: Female
  Weight: 50 kg

DRUGS (4)
  1. MIRTAZAPINE. [Suspect]
     Active Substance: MIRTAZAPINE
     Indication: DEPRESSION
     Dosage: 15 MG, QD
     Route: 048
     Dates: start: 20131210, end: 20140101
  2. VENEX (DIOSMIN) [Concomitant]
     Indication: PERIPHERAL VENOUS DISEASE
     Dosage: 450 MG, BID
     Route: 048
     Dates: start: 201310
  3. REMERON SOLTAB [Suspect]
     Active Substance: MIRTAZAPINE
     Indication: DEPRESSION
     Dosage: ON 02-JAN-2014 RESUMED THE DRUG INTAKE, SUSPENDING ON 07JAN2014, DEFINITELY.
     Route: 048
     Dates: start: 20131011, end: 20131209
  4. REMERON SOLTAB [Suspect]
     Active Substance: MIRTAZAPINE
     Dosage: ON 02-JAN-2014 RESUMED THE DRUG INTAKE, SUSPENDING ON 07-JAN-2014, DEFINITELY.
     Route: 048
     Dates: start: 20131011, end: 20131209

REACTIONS (5)
  - Muscular weakness [Recovered/Resolved]
  - Myalgia [Recovered/Resolved]
  - Muscle twitching [Recovered/Resolved]
  - Paraesthesia [Recovered/Resolved]
  - Muscle fatigue [Recovered/Resolved]

NARRATIVE: CASE EVENT DATE: 20131218
